FAERS Safety Report 16715359 (Version 2)
Quarter: 2019Q3

REPORT INFORMATION
  Report Type: Spontaneous
  Country: PR (occurrence: PR)
  Receive Date: 20190819
  Receipt Date: 20190927
  Transmission Date: 20191005
  Serious: No
  Sender: FDA-Public Use
  Company Number: PR-PFIZER INC-2019350369

PATIENT
  Age: 38 Year
  Sex: Female
  Weight: 55.78 kg

DRUGS (2)
  1. IBRANCE [Suspect]
     Active Substance: PALBOCICLIB
     Indication: BREAST CANCER FEMALE
     Dosage: 125 MG, CYCLIC (1 CAPSULE DAILY FOR 21 DAYS AND 7 OFF)
     Route: 048
     Dates: start: 20190723
  2. IBRANCE [Suspect]
     Active Substance: PALBOCICLIB
     Dosage: 125 MG, DAILY
     Route: 048
     Dates: start: 20190723

REACTIONS (10)
  - Asthenia [Not Recovered/Not Resolved]
  - Alopecia [Unknown]
  - Nausea [Unknown]
  - Muscle spasms [Unknown]
  - Vomiting [Unknown]
  - Bone pain [Unknown]
  - Abdominal discomfort [Unknown]
  - Mood altered [Unknown]
  - Vision blurred [Unknown]
  - Mobility decreased [Unknown]

NARRATIVE: CASE EVENT DATE: 20190813
